FAERS Safety Report 7631853-1 (Version None)
Quarter: 2011Q3

REPORT INFORMATION
  Report Type: 
  Country: None (occurrence: None)
  Receive Date: 20110725
  Receipt Date: 20110426
  Transmission Date: 20111222
  Serious: No
  Sender: FDA-Public Use
  Company Number: US-BRISTOL-MYERS SQUIBB COMPANY-15678717

PATIENT
  Age: 81 Year
  Sex: Male

DRUGS (1)
  1. COUMADIN [Suspect]
     Indication: CEREBRAL HAEMORRHAGE
     Dosage: EXP:04/285/2012
     Dates: start: 19990101

REACTIONS (1)
  - BONE DENSITY DECREASED [None]
